FAERS Safety Report 8698483 (Version 5)
Quarter: 2013Q4

REPORT INFORMATION
  Report Type: Spontaneous
  Country: BR (occurrence: BR)
  Receive Date: 20120802
  Receipt Date: 20131104
  Transmission Date: 20140711
  Serious: Yes (Other)
  Sender: FDA-Public Use
  Company Number: BR-PFIZER INC-2012179778

PATIENT
  Age: 65 Year
  Sex: Female
  Weight: 54 kg

DRUGS (7)
  1. SUTENT [Suspect]
     Indication: RENAL CELL CARCINOMA
     Dosage: 50 MG, 1X/DAY, CYCLIC (CYCLE 4 TO 2)
     Route: 048
     Dates: start: 20120630, end: 20130904
  2. PHENYTOIN [Concomitant]
     Dosage: UNK
  3. DECADRON [Concomitant]
     Dosage: HALT TABLET OF 2MG
  4. OMEPRAZOLE [Concomitant]
     Dosage: UNK
  5. DRAMIN /BRA/ [Concomitant]
  6. HIDANTAL [Concomitant]
     Indication: METASTASES TO CENTRAL NERVOUS SYSTEM
  7. HIDANTAL [Concomitant]
     Indication: CONVULSION

REACTIONS (15)
  - Vomiting [Unknown]
  - Hypophagia [Unknown]
  - Abdominal pain [Unknown]
  - Swelling face [Unknown]
  - Eye swelling [Unknown]
  - Bradyphrenia [Unknown]
  - Disturbance in attention [Unknown]
  - Pain in extremity [Unknown]
  - Blister [Unknown]
  - Asthenia [Unknown]
  - Gait disturbance [Unknown]
  - Skin discolouration [Not Recovered/Not Resolved]
  - Haematoma [Unknown]
  - Disease progression [Unknown]
  - Renal cell carcinoma [Unknown]
